FAERS Safety Report 17332188 (Version 1)
Quarter: 2020Q1

REPORT INFORMATION
  Report Type: Spontaneous
  Country: SE (occurrence: SE)
  Receive Date: 20200128
  Receipt Date: 20200128
  Transmission Date: 20200409
  Serious: Yes (Hospitalization)
  Sender: FDA-Public Use
  Company Number: SE-MYLANLABS-2020M1010075

PATIENT
  Age: 61 Year
  Sex: Male

DRUGS (3)
  1. IMOVANE [Suspect]
     Active Substance: ZOPICLONE
     Indication: PRODUCT USED FOR UNKNOWN INDICATION
     Dosage: 30X7,5 MG ELLER ^MAX^ 100 MG
     Route: 048
     Dates: start: 20190212, end: 20190212
  2. MIRTAZAPINE. [Suspect]
     Active Substance: MIRTAZAPINE
     Indication: PRODUCT USED FOR UNKNOWN INDICATION
     Dosage: 30X30MG ELLER ^MAX^ 900 MG
     Route: 048
     Dates: start: 20190212, end: 20190212
  3. LERGIGAN (PROMETHAZINE HYDROCHLORIDE) [Suspect]
     Active Substance: PROMETHAZINE HYDROCHLORIDE
     Indication: PRODUCT USED FOR UNKNOWN INDICATION
     Dosage: 30X25 MG ELLER ^MAX^ 1500 MG
     Route: 048
     Dates: start: 20180212, end: 20180212

REACTIONS (10)
  - Confusional state [Unknown]
  - Urinary retention [Unknown]
  - Hallucination [Unknown]
  - Intentional self-injury [Unknown]
  - Anxiety [Unknown]
  - Akathisia [Unknown]
  - Sinus tachycardia [Unknown]
  - Seizure [Unknown]
  - Loss of consciousness [Unknown]
  - Intentional overdose [Unknown]

NARRATIVE: CASE EVENT DATE: 201902
